FAERS Safety Report 13383713 (Version 1)
Quarter: 2017Q1

REPORT INFORMATION
  Report Type: Report from Study
  Country: US (occurrence: US)
  Receive Date: 20170329
  Receipt Date: 20170329
  Transmission Date: 20170429
  Serious: Yes (Hospitalization)
  Sender: FDA-Public Use
  Company Number: US-JNJFOC-20170330708

PATIENT
  Age: 60 Year
  Sex: Female

DRUGS (8)
  1. NORVASC [Concomitant]
     Active Substance: AMLODIPINE BESYLATE
  2. GABAPENTIN. [Concomitant]
     Active Substance: GABAPENTIN
  3. MULTIVITAMINS [Concomitant]
     Active Substance: VITAMINS
  4. GLUCOSAMINE [Concomitant]
     Active Substance: GLUCOSAMINE
  5. ACYCLOVIR. [Concomitant]
     Active Substance: ACYCLOVIR
  6. ULORIC [Concomitant]
     Active Substance: FEBUXOSTAT
  7. TOPROL XL [Concomitant]
     Active Substance: METOPROLOL SUCCINATE
  8. IMBRUVICA [Suspect]
     Active Substance: IBRUTINIB
     Indication: CHRONIC LYMPHOCYTIC LEUKAEMIA
     Route: 048

REACTIONS (1)
  - Laboratory test abnormal [Recovered/Resolved]

NARRATIVE: CASE EVENT DATE: 20170301
